FAERS Safety Report 9067323 (Version 2)
Quarter: 2013Q1

REPORT INFORMATION
  Report Type: Spontaneous
  Country: LB (occurrence: LB)
  Receive Date: 20130214
  Receipt Date: 20130321
  Transmission Date: 20140127
  Serious: Yes (Hospitalization)
  Sender: FDA-Public Use
  Company Number: LB-BAXTER-2013BAX004306

PATIENT
  Age: 18 Month
  Sex: Male

DRUGS (4)
  1. RECOMBINATE [Suspect]
     Indication: CEREBRAL HAEMORRHAGE
     Route: 065
     Dates: start: 20130117
  2. RECOMBINATE [Suspect]
     Indication: FACTOR VIII DEFICIENCY
  3. RECOMBINATE [Suspect]
     Indication: HAEMARTHROSIS
     Dates: start: 201211, end: 201211
  4. NOVO-SEVEN [Concomitant]
     Indication: FACTOR VIII DEFICIENCY
     Route: 065

REACTIONS (3)
  - Factor VIII inhibition [Recovered/Resolved with Sequelae]
  - Head injury [Unknown]
  - Cerebral haemorrhage [Unknown]
